FAERS Safety Report 4674491-5 (Version None)
Quarter: 2005Q2

REPORT INFORMATION
  Report Type: 
  Country: None (occurrence: None)
  Receive Date: 20050526
  Receipt Date: 20050510
  Transmission Date: 20051028
  Serious: Yes (Death)
  Sender: FDA-Public Use
  Company Number: JP-JNJFOC-20050503461

PATIENT
  Age: 83 Year
  Sex: Male

DRUGS (11)
  1. ITRIZOLE [Suspect]
     Route: 049
  2. ITRIZOLE [Suspect]
     Route: 049
  3. ITRIZOLE [Suspect]
     Indication: ONYCHOMYCOSIS
     Route: 049
  4. GLIMEPIRIDE [Concomitant]
     Route: 049
  5. FUROSEMIDE [Concomitant]
     Route: 049
  6. IMIDAPRIL HYDROCHLORIDE [Concomitant]
     Route: 049
  7. THEOPHYLLINE [Concomitant]
     Route: 049
  8. AMBROXOL HYDROCHLORIDE [Concomitant]
     Route: 049
  9. ASPIRIN [Concomitant]
     Route: 049
  10. VALSARTAN [Concomitant]
     Route: 049
  11. BEPOTASTINE BESILATE [Concomitant]
     Route: 049

REACTIONS (3)
  - CARDIAC FAILURE [None]
  - DUODENAL ULCER [None]
  - GASTROINTESTINAL HAEMORRHAGE [None]
